FAERS Safety Report 4513919-8 (Version None)
Quarter: 2004Q4

REPORT INFORMATION
  Report Type: 
  Country: None (occurrence: None)
  Receive Date: 20041124
  Receipt Date: 20041108
  Transmission Date: 20050328
  Serious: Yes (Hospitalization)
  Sender: FDA-Public Use
  Company Number: DSA_25380_2004

PATIENT
  Age: 44 Year
  Sex: Female

DRUGS (8)
  1. TEMESTA [Suspect]
     Indication: DEPRESSION
     Dosage: DF Q DAY PO
     Route: 048
     Dates: start: 20040311
  2. CIPRALEX [Suspect]
     Dosage: 10 MG Q DAY PO
     Route: 048
     Dates: start: 20040309
  3. NOLVADEX [Suspect]
     Dosage: 20 MG Q DAY PO
     Route: 048
     Dates: start: 20030701
  4. SURMONTIL [Suspect]
     Dosage: 75 MG Q DAY PO
     Route: 048
     Dates: start: 20040309, end: 20040315
  5. SURMONTIL [Suspect]
     Dosage: 50 MG Q DAY PO
     Route: 048
     Dates: start: 20040316
  6. ZYPREXA [Suspect]
     Dosage: 2.5 MG Q DAY PO
     Route: 048
     Dates: start: 20040311, end: 20040315
  7. ZYPREXA [Suspect]
     Dosage: 5 MG Q DAY PO
     Route: 048
     Dates: start: 20040316, end: 20040424
  8. ZYPREXA [Suspect]
     Dosage: 10 MG Q DAY PO
     Route: 048
     Dates: start: 20040329, end: 20040901

REACTIONS (3)
  - OEDEMA PERIPHERAL [None]
  - WEIGHT DECREASED [None]
  - WEIGHT INCREASED [None]
